FAERS Safety Report 7244910-9 (Version None)
Quarter: 2011Q1

REPORT INFORMATION
  Report Type: 
  Country: None (occurrence: None)
  Receive Date: 20110126
  Receipt Date: 20110117
  Transmission Date: 20110831
  Serious: Yes (Other)
  Sender: FDA-Public Use
  Company Number: DE-NOVOPROD-318707

PATIENT
  Age: 17 Year
  Sex: Male
  Weight: 87 kg

DRUGS (5)
  1. TESTOSTERON                        /00103101/ [Concomitant]
     Dosage: UNK
  2. HYDROCORTISON                      /00028601/ [Concomitant]
     Dosage: UNK
  3. LEVOTHYROXINE SODIUM [Concomitant]
     Dosage: UNK
     Route: 048
  4. NORDITROPIN [Suspect]
     Indication: HYPOPITUITARISM
     Dosage: 0.5 MG, QD
     Route: 058
     Dates: start: 20060101, end: 20100101
  5. MINIRIN                            /00361901/ [Concomitant]
     Dosage: UNK

REACTIONS (2)
  - EWING'S SARCOMA [None]
  - HYPOPITUITARISM [None]
